FAERS Safety Report 14108546 (Version 1)
Quarter: 2017Q4

REPORT INFORMATION
  Report Type: Spontaneous
  Country: US (occurrence: US)
  Receive Date: 20171019
  Receipt Date: 20171019
  Transmission Date: 20180321
  Serious: No
  Sender: FDA-Public Use
  Company Number: US-PFIZER INC-2017449816

PATIENT
  Age: 73 Year
  Sex: Male
  Weight: 104.3 kg

DRUGS (1)
  1. GABAPENTIN. [Suspect]
     Active Substance: GABAPENTIN
     Indication: NEUROPATHY PERIPHERAL
     Dosage: 300 MG, UNK

REACTIONS (2)
  - Somnolence [Unknown]
  - Drug ineffective for unapproved indication [Unknown]
